FAERS Safety Report 5862681-5 (Version None)
Quarter: 2008Q3

REPORT INFORMATION
  Report Type: 
  Country: None (occurrence: None)
  Receive Date: 20080827
  Receipt Date: 20080827
  Transmission Date: 20090109
  Serious: Yes (Other)
  Sender: FDA-Public Use
  Company Number: None

PATIENT
  Age: 24 Year
  Sex: Female
  Weight: 61.2356 kg

DRUGS (2)
  1. CIPRO XR [Suspect]
     Indication: URINARY TRACT INFECTION
     Dosage: 750MG DAILY PO
     Route: 048
     Dates: start: 20080503, end: 20080509
  2. LEVAQUIN [Suspect]
     Indication: URINARY TRACT INFECTION
     Dosage: 1000MG DAILY PO
     Route: 048
     Dates: start: 20080510, end: 20080513

REACTIONS (1)
  - SYSTEMIC LUPUS ERYTHEMATOSUS [None]
